FAERS Safety Report 18472638 (Version 2)
Quarter: 2020Q4

REPORT INFORMATION
  Report Type: Spontaneous
  Country: CN (occurrence: CN)
  Receive Date: 20201106
  Receipt Date: 20201112
  Transmission Date: 20210114
  Serious: Yes (Hospitalization, Other)
  Sender: FDA-Public Use
  Company Number: CN-GLAXOSMITHKLINE-CN2020GSK220811

PATIENT
  Age: 45 Year
  Sex: Male

DRUGS (2)
  1. BENZBROMARONE [Suspect]
     Active Substance: BENZBROMARONE
     Indication: GOUT
     Dosage: UNK
     Route: 048
  2. DICLOFENAC SODIUM. [Suspect]
     Active Substance: DICLOFENAC SODIUM
     Indication: GOUT
     Dosage: UNK
     Route: 048

REACTIONS (12)
  - Acute kidney injury [Unknown]
  - Muscular weakness [Unknown]
  - Nausea [Unknown]
  - Renal impairment [Unknown]
  - Therapeutic product effect decreased [Unknown]
  - Renal failure [Unknown]
  - White blood cells urine positive [Unknown]
  - Dyslipidaemia [Unknown]
  - Hypertension [Recovered/Resolved]
  - Back pain [Unknown]
  - Blood creatinine increased [Unknown]
  - Disease recurrence [Unknown]
